FAERS Safety Report 8344489-4 (Version None)
Quarter: 2012Q2

REPORT INFORMATION
  Report Type: 
  Country: None (occurrence: None)
  Receive Date: 20120508
  Receipt Date: 20120427
  Transmission Date: 20120825
  Serious: Yes (Hospitalization)
  Sender: FDA-Public Use
  Company Number: US-JNJFOC-20120209139

PATIENT
  Sex: Female
  Weight: 58.97 kg

DRUGS (4)
  1. REMICADE [Suspect]
     Route: 042
     Dates: start: 20070101
  2. REMICADE [Suspect]
     Indication: JUVENILE ARTHRITIS
     Dosage: ALSO REPORTED AS EVERY 6 WEEKS
     Route: 042
  3. UNSPECIFIED ALLERGY MEDICATIONS [Concomitant]
     Indication: HYPERSENSITIVITY
     Route: 065
  4. MORPHINE [Suspect]
     Indication: PRODUCT USED FOR UNKNOWN INDICATION
     Route: 065

REACTIONS (8)
  - BODY HEIGHT DECREASED [None]
  - DRUG INEFFECTIVE [None]
  - NEPHROLITHIASIS [None]
  - FOOD ALLERGY [None]
  - JUVENILE ARTHRITIS [None]
  - TENDON DISORDER [None]
  - ABNORMAL LOSS OF WEIGHT [None]
  - CHOLELITHIASIS [None]
